FAERS Safety Report 7138509-2 (Version None)
Quarter: 2010Q4

REPORT INFORMATION
  Report Type: 
  Country: None (occurrence: None)
  Receive Date: 20101202
  Receipt Date: 20101202
  Transmission Date: 20110411
  Serious: No
  Sender: FDA-Public Use
  Company Number: None

PATIENT
  Sex: Female
  Weight: 104.3273 kg

DRUGS (1)
  1. GIANVI 3 MG 10 OZ MG TEVA [Suspect]
     Indication: MENORRHAGIA
     Dosage: 1 QD PO
     Route: 048
     Dates: start: 20101001

REACTIONS (3)
  - DRUG EFFECT DECREASED [None]
  - METRORRHAGIA [None]
  - THERAPEUTIC RESPONSE UNEXPECTED WITH DRUG SUBSTITUTION [None]
